FAERS Safety Report 6734916-8 (Version None)
Quarter: 2010Q2

REPORT INFORMATION
  Report Type: 
  Country: None (occurrence: None)
  Receive Date: 20100521
  Receipt Date: 20100514
  Transmission Date: 20101027
  Serious: Yes (Hospitalization)
  Sender: FDA-Public Use
  Company Number: US-BIOGENIDEC-2010BI016049

PATIENT
  Age: 25 Year
  Sex: Female
  Weight: 102 kg

DRUGS (1)
  1. AVONEX [Suspect]
     Indication: MULTIPLE SCLEROSIS
     Route: 030
     Dates: start: 20080802

REACTIONS (4)
  - CYSTITIS [None]
  - DIARRHOEA [None]
  - MULTIPLE SCLEROSIS RELAPSE [None]
  - VOMITING [None]
